FAERS Safety Report 6441203-4 (Version None)
Quarter: 2009Q4

REPORT INFORMATION
  Report Type: 
  Country: None (occurrence: None)
  Receive Date: 20091116
  Receipt Date: 20091104
  Transmission Date: 20100525
  Serious: Yes (Death, Hospitalization, Other)
  Sender: FDA-Public Use
  Company Number: IT-PFIZER INC-2009293849

PATIENT
  Age: 50 Year
  Sex: Female

DRUGS (1)
  1. VORICONAZOLE [Suspect]
     Indication: ANTIFUNGAL PROPHYLAXIS
     Dosage: 200 MG, 2X/DAY
     Route: 048
     Dates: start: 20060101, end: 20070101

REACTIONS (2)
  - DRUG INEFFECTIVE [None]
  - SINUSITIS FUNGAL [None]
